FAERS Safety Report 4985517-3 (Version None)
Quarter: 2006Q2

REPORT INFORMATION
  Report Type: 
  Country: None (occurrence: None)
  Receive Date: 20060428
  Receipt Date: 20050810
  Transmission Date: 20061013
  Serious: No
  Sender: FDA-Public Use
  Company Number: US-GLAXOSMITHKLINE-A0569686A

PATIENT
  Age: 70 Year
  Sex: Female
  Weight: 44.5 kg

DRUGS (12)
  1. FLOVENT [Suspect]
     Indication: EMPHYSEMA
     Dosage: 2PUFF TWICE PER DAY
     Route: 055
     Dates: start: 20010101, end: 20050401
  2. FLOVENT [Suspect]
     Indication: CHRONIC OBSTRUCTIVE PULMONARY DISEASE
     Dosage: 2PUFF TWICE PER DAY
     Route: 055
     Dates: start: 20010101, end: 20050401
  3. PAROXETINE HCL [Suspect]
     Indication: ANXIETY
     Dosage: 10MG TWICE PER DAY
     Route: 048
     Dates: start: 20050501
  4. FLONASE [Concomitant]
     Route: 045
  5. DIOVAN [Concomitant]
  6. SINGULAIR [Concomitant]
  7. COMBIVENT [Concomitant]
  8. MIACALCIN [Concomitant]
  9. ALBUTEROL SULFATE AUTOHALER [Concomitant]
     Route: 055
  10. BENA [Concomitant]
  11. MYLANTA [Concomitant]
  12. MUCINEX [Concomitant]

REACTIONS (8)
  - ABDOMINAL PAIN UPPER [None]
  - ANXIETY [None]
  - DRUG INEFFECTIVE [None]
  - FEAR [None]
  - GLOSSODYNIA [None]
  - HYPERHIDROSIS [None]
  - ORAL CANDIDIASIS [None]
  - ORAL FUNGAL INFECTION [None]
